FAERS Safety Report 25691448 (Version 1)
Quarter: 2025Q3

REPORT INFORMATION
  Report Type: Spontaneous
  Country: US (occurrence: US)
  Receive Date: 20250818
  Receipt Date: 20250818
  Transmission Date: 20251021
  Serious: No
  Sender: IPSEN BIOPHARMACEUTICALS, INC.
  Company Number: US-IPSEN Group, Research and Development-2025-19810

PATIENT
  Age: 51 Year
  Sex: Female

DRUGS (1)
  1. IQIRVO [Suspect]
     Active Substance: ELAFIBRANOR
     Indication: Primary biliary cholangitis
     Dates: start: 202508

REACTIONS (3)
  - Throat irritation [Unknown]
  - Arthralgia [Unknown]
  - Throat tightness [Unknown]

NARRATIVE: CASE EVENT DATE: 20250801
